FAERS Safety Report 15349492 (Version 1)
Quarter: 2018Q3

REPORT INFORMATION
  Report Type: Spontaneous
  Country: FR (occurrence: FR)
  Receive Date: 20180904
  Receipt Date: 20180904
  Transmission Date: 20181010
  Serious: Yes (Life-Threatening, Hospitalization)
  Sender: FDA-Public Use
  Company Number: FR-NAPPMUNDI-GBR-2018-0058846

PATIENT
  Age: 45 Year
  Sex: Male
  Weight: 78 kg

DRUGS (15)
  1. CISPLATINE [Concomitant]
     Active Substance: CISPLATIN
  2. PAROXETINE HCL?ANHYDRAAT A [Concomitant]
     Active Substance: PAROXETINE HYDROCHLORIDE
  3. OXYNORM [Suspect]
     Active Substance: OXYCODONE HYDROCHLORIDE
     Indication: SQUAMOUS CELL CARCINOMA OF THE TONGUE
     Dosage: 5 MG, Q4H
     Route: 048
  4. SERESTA [Suspect]
     Active Substance: OXAZEPAM
     Indication: DEPRESSION
     Dosage: 150 MG, DAILY
     Route: 048
  5. PREGABALIN. [Concomitant]
     Active Substance: PREGABALIN
  6. DIFFU K [Concomitant]
     Active Substance: POTASSIUM CHLORIDE
  7. TERCIAN                            /00759301/ [Suspect]
     Active Substance: CYAMEMAZINE
     Indication: AGITATION
     Dosage: UNK
     Route: 048
     Dates: start: 20180323
  8. DUROGESIC [Suspect]
     Active Substance: FENTANYL
     Indication: POLYNEUROPATHY ALCOHOLIC
     Dosage: 37.5 MG, TID
     Route: 062
  9. PHOSPHONEUROS [Concomitant]
     Active Substance: CALCIUM PHOSPHATE, DIBASIC, ANHYDROUS\MAGNESIUM GLYCEROPHOSPHATE\PHOSPHORIC ACID\SODIUM PHOSPHATE, DIBASIC
  10. LEXOMIL [Suspect]
     Active Substance: BROMAZEPAM
     Indication: DEPRESSION
     Dosage: 1 DF, DAILY
     Route: 048
  11. MAG 2                              /00454301/ [Concomitant]
     Active Substance: MAGNESIUM CARBONATE
  12. HYDROSOL POLYVITAMINE B.O.N. [Concomitant]
     Active Substance: VITAMINS
  13. DOLIPRANE [Concomitant]
     Active Substance: ACETAMINOPHEN
  14. VOGALENE [Concomitant]
     Active Substance: METOPIMAZINE
  15. NICOPATCH [Concomitant]
     Active Substance: NICOTINE

REACTIONS (2)
  - Oxygen saturation decreased [Recovered/Resolved]
  - Depressed level of consciousness [Recovered/Resolved]

NARRATIVE: CASE EVENT DATE: 20180324
